FAERS Safety Report 14301147 (Version 1)
Quarter: 2017Q4

REPORT INFORMATION
  Report Type: Spontaneous
  Country: US (occurrence: US)
  Receive Date: 20171219
  Receipt Date: 20171219
  Transmission Date: 20180321
  Serious: Yes (Other)
  Sender: FDA-Public Use
  Company Number: US-TEVA-2017-US-836645

PATIENT
  Age: 28 Year
  Sex: Female
  Weight: 75.82 kg

DRUGS (2)
  1. CYMBALTA [Concomitant]
     Active Substance: DULOXETINE HYDROCHLORIDE
     Indication: DEPRESSION
     Dosage: 90 MILLIGRAM DAILY;
     Dates: start: 2015
  2. NUVIGIL [Suspect]
     Active Substance: ARMODAFINIL
     Dates: start: 2015, end: 20170921

REACTIONS (1)
  - Abortion spontaneous [Unknown]

NARRATIVE: CASE EVENT DATE: 201704
